FAERS Safety Report 7900522-2 (Version None)
Quarter: 2011Q4

REPORT INFORMATION
  Report Type: 
  Country: None (occurrence: None)
  Receive Date: 20111108
  Receipt Date: 20111027
  Transmission Date: 20120403
  Serious: Yes (Hospitalization)
  Sender: FDA-Public Use
  Company Number: US-BRISTOL-MYERS SQUIBB COMPANY-16185183

PATIENT
  Age: 72 Year
  Sex: Female
  Weight: 81 kg

DRUGS (4)
  1. COUMADIN [Suspect]
  2. IXABEPILONE [Suspect]
     Indication: ENDOMETRIAL CANCER
     Dosage: OVER 1 HR ON DAY 1 IN 6 CYCLES. 57MG. LAST DOSE:16AUG11
     Route: 042
     Dates: start: 20110624
  3. CARBOPLATIN [Suspect]
     Indication: ENDOMETRIAL CANCER
     Dosage: DOSE OF AUC 6 OVER 30MINS ON DAY 1 IN 6CYCLES. LAST DOSE:16AUG11
     Route: 042
     Dates: start: 20110624
  4. BEVACIZUMAB [Suspect]
     Indication: ENDOMETRIAL CANCER
     Dosage: OVER 30-90 MIN ON DAY 1. 1214MG. LAST DOSE:16AUG11
     Route: 042
     Dates: start: 20110624

REACTIONS (12)
  - SOFT TISSUE NECROSIS [None]
  - ANAEMIA [None]
  - HYPONATRAEMIA [None]
  - HYPOMAGNESAEMIA [None]
  - HYPOCALCAEMIA [None]
  - HYPOKALAEMIA [None]
  - NEUTROPHIL COUNT DECREASED [None]
  - HYPOPHOSPHATAEMIA [None]
  - INTERNATIONAL NORMALISED RATIO INCREASED [None]
  - GASTROINTESTINAL FISTULA [None]
  - WHITE BLOOD CELL COUNT DECREASED [None]
  - HYPOALBUMINAEMIA [None]
